FAERS Safety Report 19112245 (Version 1)
Quarter: 2021Q2

REPORT INFORMATION
  Report Type: Spontaneous
  Country: US (occurrence: US)
  Receive Date: 20210409
  Receipt Date: 20210409
  Transmission Date: 20210717
  Serious: Yes (Hospitalization, Other)
  Sender: FDA-Public Use
  Company Number: None

PATIENT
  Age: 80 Year
  Sex: Male
  Weight: 72.6 kg

DRUGS (1)
  1. BAMLANIVIMAB?ETESEVIMAB [Suspect]
     Active Substance: BAMLANIVIMAB\ETESEVIMAB
     Indication: COVID-19
     Dosage: ?          OTHER FREQUENCY:ONCE;?
     Route: 042
     Dates: start: 20210401, end: 20210401

REACTIONS (4)
  - Oxygen saturation decreased [None]
  - Inflammatory marker increased [None]
  - Pyrexia [None]
  - SARS-CoV-2 test positive [None]

NARRATIVE: CASE EVENT DATE: 20210401
